FAERS Safety Report 9738906 (Version 2)
Quarter: 2013Q4

REPORT INFORMATION
  Report Type: Spontaneous
  Country: JP (occurrence: JP)
  Receive Date: 20131209
  Receipt Date: 20131223
  Transmission Date: 20140711
  Serious: Yes (Hospitalization)
  Sender: FDA-Public Use
  Company Number: JP-JNJFOC-20131200746

PATIENT
  Age: 80 Year
  Sex: Male
  Weight: 75 kg

DRUGS (9)
  1. XARELTO [Suspect]
     Indication: CEREBROVASCULAR ACCIDENT PROPHYLAXIS
     Route: 048
  2. XARELTO [Suspect]
     Indication: CEREBROVASCULAR ACCIDENT PROPHYLAXIS
     Route: 048
     Dates: start: 20130515, end: 20131126
  3. XARELTO [Suspect]
     Indication: ANTICOAGULANT THERAPY
     Route: 048
  4. XARELTO [Suspect]
     Indication: ANTICOAGULANT THERAPY
     Route: 048
     Dates: start: 20130515, end: 20131126
  5. EUGLUCON [Concomitant]
     Route: 048
  6. JANUVIA [Concomitant]
     Route: 048
  7. HERBESSER R [Concomitant]
     Route: 048
  8. METFORMIN HYDROCHLORIDE [Concomitant]
     Route: 048
  9. NEXIUM [Concomitant]
     Route: 048

REACTIONS (2)
  - Embolic stroke [Recovered/Resolved with Sequelae]
  - Drug ineffective [Unknown]
